FAERS Safety Report 6752274-X (Version None)
Quarter: 2010Q2

REPORT INFORMATION
  Report Type: 
  Country: None (occurrence: None)
  Receive Date: 20100601
  Receipt Date: 20100601
  Transmission Date: 20101027
  Serious: Yes (Life-Threatening, Hospitalization, Other)
  Sender: FDA-Public Use
  Company Number: None

PATIENT
  Sex: Male
  Weight: 104.3273 kg

DRUGS (2)
  1. ALLI [Suspect]
     Indication: WEIGHT DECREASED
     Dosage: 1 CAPSULE 2-3 TIMES DAILY PO
     Route: 048
  2. LAMICTAL XR [Suspect]
     Indication: CONVULSION
     Dosage: 2 TABLETS ONCE DAILY PO
     Route: 048

REACTIONS (4)
  - FALL [None]
  - GRAND MAL CONVULSION [None]
  - HEAD INJURY [None]
  - LOSS OF CONSCIOUSNESS [None]
